FAERS Safety Report 23498973 (Version 1)
Quarter: 2024Q1

REPORT INFORMATION
  Report Type: Spontaneous
  Country: US (occurrence: None)
  Receive Date: 20240207
  Receipt Date: 20240207
  Transmission Date: 20240409
  Serious: No
  Sender: FDA-Public Use
  Company Number: None

PATIENT
  Age: 51 Year
  Sex: Female
  Weight: 99.1 kg

DRUGS (1)
  1. PACLITAXEL [Suspect]
     Active Substance: PACLITAXEL
     Dates: start: 20240130, end: 20240130

REACTIONS (8)
  - Chest discomfort [None]
  - Infusion related reaction [None]
  - Depressed level of consciousness [None]
  - Carotid pulse abnormal [None]
  - Heart rate decreased [None]
  - Oxygen saturation decreased [None]
  - Blood pressure immeasurable [None]
  - Angioedema [None]

NARRATIVE: CASE EVENT DATE: 20240130
